FAERS Safety Report 9098484 (Version 2)
Quarter: 2013Q1

REPORT INFORMATION
  Report Type: Spontaneous
  Country: CH (occurrence: CH)
  Receive Date: 20130213
  Receipt Date: 20130219
  Transmission Date: 20140127
  Serious: Yes (Other)
  Sender: FDA-Public Use
  Company Number: CH-TEVA-384542ISR

PATIENT
  Sex: Female

DRUGS (1)
  1. CARBOPLATIN-TEVA 450 MG [Suspect]
     Route: 042

REACTIONS (1)
  - Drug hypersensitivity [Unknown]
